FAERS Safety Report 17300755 (Version 1)
Quarter: 2020Q1

REPORT INFORMATION
  Report Type: Spontaneous
  Country: US (occurrence: US)
  Receive Date: 20200122
  Receipt Date: 20200122
  Transmission Date: 20200409
  Serious: No
  Sender: FDA-Public Use
  Company Number: US-ALLERGAN-1948842US

PATIENT
  Sex: Female

DRUGS (1)
  1. RESTASIS [Suspect]
     Active Substance: CYCLOSPORINE
     Indication: PRODUCT USED FOR UNKNOWN INDICATION

REACTIONS (7)
  - Dry eye [Unknown]
  - Sleep disorder [Unknown]
  - Ocular hyperaemia [Unknown]
  - Visual impairment [Unknown]
  - Foreign body sensation in eyes [Unknown]
  - Lagophthalmos [Unknown]
  - Eye pain [Unknown]
